FAERS Safety Report 7832043-X (Version None)
Quarter: 2011Q4

REPORT INFORMATION
  Report Type: 
  Country: None (occurrence: None)
  Receive Date: 20111021
  Receipt Date: 20111012
  Transmission Date: 20120403
  Serious: Yes (Hospitalization, Other)
  Sender: FDA-Public Use
  Company Number: US-ASTRAZENECA-2011SE56627

PATIENT
  Age: 59 Year
  Sex: Female

DRUGS (1)
  1. ATACAND HCT [Suspect]
     Route: 048

REACTIONS (3)
  - MEMORY IMPAIRMENT [None]
  - PROCEDURAL PAIN [None]
  - LUNG NEOPLASM MALIGNANT [None]
